FAERS Safety Report 6831675-5 (Version None)
Quarter: 2010Q3

REPORT INFORMATION
  Report Type: 
  Country: None (occurrence: None)
  Receive Date: 20100707
  Receipt Date: 20100622
  Transmission Date: 20110219
  Serious: Yes (Death)
  Sender: FDA-Public Use
  Company Number: 2010001294

PATIENT
  Age: 50 Year
  Sex: Female

DRUGS (11)
  1. ERLOTINIB (ERLOTINIB) (TABLET) (ERLOTINIB) [Suspect]
     Indication: OVARIAN CANCER
     Dosage: 100 MG, QD, ORAL
     Route: 048
     Dates: start: 20090528, end: 20100322
  2. BEVACIZUMAB [Suspect]
     Indication: OVARIAN CANCER
     Dosage: 15 MG/KG, Q3W, INTRAVENOUS
     Route: 042
     Dates: start: 20090122, end: 20090507
  3. CARBOPLATIN [Suspect]
     Indication: OVARIAN CANCER
     Dates: start: 20090122, end: 20090507
  4. ARIXTRA [Concomitant]
  5. CLINDAMYCIN HCL [Concomitant]
  6. FLUCINONIDE (FLUOCINONIDE) [Concomitant]
  7. FLUOXETINE [Concomitant]
  8. LISINOPRIL [Concomitant]
  9. MULTIVITAMIN (MULTIVITAMIN) [Concomitant]
  10. NORVASC [Concomitant]
  11. ERGOCALCIFEROL [Concomitant]

REACTIONS (1)
  - CARDIAC ARREST [None]
